FAERS Safety Report 7409017-6 (Version None)
Quarter: 2011Q2

REPORT INFORMATION
  Report Type: 
  Country: None (occurrence: None)
  Receive Date: 20110412
  Receipt Date: 20110329
  Transmission Date: 20111010
  Serious: Yes (Hospitalization)
  Sender: FDA-Public Use
  Company Number: NL-SANOFI-AVENTIS-2011SA020089

PATIENT
  Age: 76 Year
  Sex: Female
  Weight: 68 kg

DRUGS (10)
  1. ATORVASTATIN CALCIUM [Concomitant]
     Route: 065
  2. PERINDOPRIL ERBUMINE [Concomitant]
     Route: 065
     Dates: start: 20050502
  3. MAGNESIUM HYDROXIDE [Concomitant]
     Route: 065
  4. PLAVIX [Suspect]
     Route: 065
     Dates: start: 20050502
  5. ASPIRIN [Suspect]
     Route: 065
     Dates: start: 20050502
  6. BISOPROLOL FUMARATE [Concomitant]
     Route: 065
     Dates: start: 20050502
  7. BUMETANIDE [Concomitant]
     Route: 065
     Dates: start: 20050502, end: 20050930
  8. SPIRONOLACTONE [Concomitant]
     Route: 065
     Dates: start: 20051129
  9. BUMETANIDE [Concomitant]
     Route: 065
     Dates: start: 20050930
  10. PANTOZOL [Concomitant]
     Route: 065
     Dates: start: 20051129

REACTIONS (1)
  - ANAEMIA [None]
